FAERS Safety Report 9891986 (Version 1)
Quarter: 2014Q1

REPORT INFORMATION
  Report Type: Spontaneous
  Country: GB (occurrence: GB)
  Receive Date: 20140212
  Receipt Date: 20140212
  Transmission Date: 20141002
  Serious: Yes (Hospitalization)
  Sender: FDA-Public Use
  Company Number: GB-TEVA-460376ISR

PATIENT
  Age: 75 Year
  Sex: 0

DRUGS (11)
  1. AMIODARONE [Suspect]
     Dosage: 200 MILLIGRAM DAILY;
     Route: 048
     Dates: start: 20131202
  2. LOSARTAN [Concomitant]
     Dosage: 25 MILLIGRAM DAILY;
     Route: 048
     Dates: start: 20131202
  3. METFORMIN [Concomitant]
     Dosage: 1000 MILLIGRAM DAILY;
     Route: 048
  4. GLICLAZIDE [Concomitant]
     Dosage: 80 MILLIGRAM DAILY;
     Route: 048
  5. WARFARIN [Concomitant]
     Dosage: VARIABLE
     Route: 048
  6. ATORVASTATIN [Concomitant]
     Dosage: 80 MILLIGRAM DAILY; AT NIGHT.
     Route: 048
  7. ASPIRIN [Concomitant]
     Dosage: 75 MILLIGRAM DAILY;
     Route: 048
  8. LANSOPRAZOLE [Concomitant]
     Dosage: 30 MILLIGRAM DAILY;
     Route: 048
  9. BISOPROLOL [Concomitant]
     Dosage: 2.5 MILLIGRAM DAILY;
     Route: 048
  10. TRIMETHOPRIM [Concomitant]
     Dosage: 400 MILLIGRAM DAILY;
     Route: 048
  11. EXENATIDE [Concomitant]

REACTIONS (2)
  - Cough [Unknown]
  - Pain [Unknown]
